FAERS Safety Report 13090798 (Version 3)
Quarter: 2017Q1

REPORT INFORMATION
  Report Type: Report from Study
  Country: CI (occurrence: CI)
  Receive Date: 20170106
  Receipt Date: 20170213
  Transmission Date: 20170428
  Serious: Yes (Death, Hospitalization, Other)
  Sender: FDA-Public Use
  Company Number: CI-BRISTOL-MYERS SQUIBB COMPANY-BMS-2016-056226

PATIENT
  Age: 26 Year
  Sex: Male
  Weight: 51 kg

DRUGS (6)
  1. EFAVIRENZ [Suspect]
     Active Substance: EFAVIRENZ
     Indication: HIV INFECTION
     Dosage: UNK, QD
     Route: 065
     Dates: start: 20160511, end: 20161228
  2. FEFOL                              /00098901/ [Concomitant]
     Indication: PRODUCT USED FOR UNKNOWN INDICATION
     Dosage: UNK
     Route: 065
     Dates: start: 20160429, end: 20160629
  3. RIFAMPIN. [Suspect]
     Active Substance: RIFAMPIN
     Indication: TUBERCULOSIS
     Dosage: UNK, QD
     Route: 048
     Dates: start: 20160614, end: 20160629
  4. TENOFOVIR DISOPROXIL FUMARATE. [Suspect]
     Active Substance: TENOFOVIR DISOPROXIL FUMARATE
     Indication: HIV INFECTION
     Dosage: UNK, QD
     Route: 065
     Dates: start: 20160511, end: 20161228
  5. LAMIVUDINE. [Suspect]
     Active Substance: LAMIVUDINE
     Indication: HIV INFECTION
     Dosage: UNK UNK, QD
     Route: 065
     Dates: start: 20160511, end: 20161228
  6. ISONIAZID. [Suspect]
     Active Substance: ISONIAZID
     Indication: TUBERCULOSIS
     Dosage: UNK
     Route: 048
     Dates: start: 20160614, end: 20160629

REACTIONS (4)
  - General physical condition abnormal [Fatal]
  - Hepatocellular injury [Unknown]
  - Encephalopathy [Fatal]
  - Hepatic enzyme increased [Recovering/Resolving]

NARRATIVE: CASE EVENT DATE: 20160629
